FAERS Safety Report 6346660-X (Version None)
Quarter: 2009Q3

REPORT INFORMATION
  Report Type: 
  Country: None (occurrence: None)
  Receive Date: 20090904
  Receipt Date: 20090821
  Transmission Date: 20100115
  Serious: Yes (Death)
  Sender: FDA-Public Use
  Company Number: 8051184

PATIENT
  Age: 69 Year
  Sex: Female

DRUGS (4)
  1. PREDNISOLONE [Suspect]
     Indication: PRIMARY EFFUSION LYMPHOMA
     Dates: start: 20070701
  2. CYCLOPHOSPHAMIDE [Suspect]
     Indication: PRIMARY EFFUSION LYMPHOMA
     Dates: start: 20070701
  3. DOXORUBICIN HCL [Suspect]
     Indication: PRIMARY EFFUSION LYMPHOMA
     Dates: start: 20070701
  4. VINCRISTINE [Suspect]
     Indication: PRIMARY EFFUSION LYMPHOMA
     Dates: start: 20070701

REACTIONS (3)
  - B-CELL LYMPHOMA [None]
  - RECURRENT CANCER [None]
  - THERAPEUTIC PRODUCT INEFFECTIVE [None]
